FAERS Safety Report 9761025 (Version 2)
Quarter: 2014Q2

REPORT INFORMATION
  Report Type: Spontaneous
  Country: US (occurrence: None)
  Receive Date: 20131212
  Receipt Date: 20140408
  Transmission Date: 20141212
  Serious: Yes (Other)
  Sender: FDA-Public Use
  Company Number: 2013-US-004012

PATIENT
  Age: 31 Year
  Sex: Female

DRUGS (10)
  1. XYREM (SODIUM OXYBATE) ORAL SOLUTION, 500MG/ML [Suspect]
     Indication: HYPERSOMNIA
     Dates: start: 20131006, end: 20131006
  2. XYREM (SODIUM OXYBATE) ORAL SOLUTION, 500MG/ML [Suspect]
     Indication: FIBROMYALGIA
     Dates: start: 20131006, end: 20131006
  3. XANAX (ALPRAZOLAM) [Concomitant]
  4. PERCOCET (OXYCODONE HYDROCHLORIDE, PARACETAMOL) [Concomitant]
  5. NEURONTIN (GABAPENTIN) [Concomitant]
  6. KETOROLAC (KETOROLAC) [Concomitant]
  7. METOPROLOL (METOPROLOL TARTRATE) [Concomitant]
  8. DILTIAZEM (DILTIAZEM HYDROCHLORIDE) (DILTIAZEM HYDROCHLORIDE) [Concomitant]
  9. CELEXA (CITALOPRAM HYDROBROMIDE) [Concomitant]
  10. ADDERALL (AFETAMINE ASPARTATE, AMFETAMINE SULFATE, DEXAMFETAMINE SACCHARATE, DEXAMFETAMINE SULFATE) [Concomitant]

REACTIONS (7)
  - Seizure like phenomena [None]
  - Suicidal ideation [None]
  - Hallucination [None]
  - Poor quality sleep [None]
  - Stress [None]
  - Crying [None]
  - Off label use [None]
